FAERS Safety Report 23258407 (Version 4)
Quarter: 2023Q4

REPORT INFORMATION
  Report Type: Spontaneous
  Country: US (occurrence: US)
  Receive Date: 20231204
  Receipt Date: 20231227
  Transmission Date: 20240110
  Serious: No
  Sender: FDA-Public Use
  Company Number: US-OPELLA-2023OHG016581

PATIENT
  Sex: Female

DRUGS (1)
  1. ICY HOT WITH LIDOCAINE NO-MESS [Suspect]
     Active Substance: LIDOCAINE\MENTHOL
     Dosage: DOSE STRENGTH: 2.96 G; 0,74 G/74 ML

REACTIONS (2)
  - Drug ineffective [Unknown]
  - No adverse event [Unknown]
